FAERS Safety Report 12547998 (Version 1)
Quarter: 2016Q3

REPORT INFORMATION
  Report Type: Spontaneous
  Country: US (occurrence: None)
  Receive Date: 20160711
  Receipt Date: 20160711
  Transmission Date: 20161109
  Serious: No
  Sender: FDA-Public Use
  Company Number: None

PATIENT
  Age: 77 Year
  Sex: Female

DRUGS (1)
  1. CAPECITABINE TAB 500MG [Suspect]
     Active Substance: CAPECITABINE
     Dosage: 1000MG 2 BID 7 DAYS O ORAL
     Route: 048

REACTIONS (1)
  - Arthralgia [None]

NARRATIVE: CASE EVENT DATE: 20160707
